FAERS Safety Report 5066522-8 (Version None)
Quarter: 2006Q3

REPORT INFORMATION
  Report Type: 
  Country: None (occurrence: None)
  Receive Date: 20060731
  Receipt Date: 20060731
  Transmission Date: 20061208
  Serious: Yes (Hospitalization)
  Sender: FDA-Public Use
  Company Number: None

PATIENT
  Sex: Male
  Weight: 79.7 kg

DRUGS (12)
  1. GLIADEL [Suspect]
     Indication: GLIOBLASTOMA MULTIFORME
     Dosage: 7.7 MG PER WAFER ONCE IV
     Route: 042
     Dates: start: 20060316
  2. 06-BENZYLGUANINE (06BG) [Suspect]
     Indication: GLIOBLASTOMA MULTIFORME
     Dosage: 30 MG /M2 INFUSION X 5 DAYS IV
     Route: 042
     Dates: start: 20060316, end: 20060321
  3. DILANTIN [Concomitant]
  4. KEPPRA [Concomitant]
  5. SENOKOT/COLACE [Concomitant]
  6. CITALOPRA [Concomitant]
  7. INNOHEP [Concomitant]
  8. DEXAMETHASONE [Concomitant]
  9. CENTRUM SILVER [Concomitant]
  10. POTASSIUM CL [Concomitant]
  11. CALMATRIX CALCIUM WITH D [Concomitant]
  12. MULTI-VITAMIN [Concomitant]

REACTIONS (7)
  - CONVULSION [None]
  - DISEASE PROGRESSION [None]
  - FALL [None]
  - HEAD INJURY [None]
  - HEMIPARESIS [None]
  - HYPOAESTHESIA [None]
  - PARTIAL SEIZURES [None]
